FAERS Safety Report 25551351 (Version 1)
Quarter: 2025Q3

REPORT INFORMATION
  Report Type: Spontaneous
  Country: EU (occurrence: EU)
  Receive Date: 20250714
  Receipt Date: 20250714
  Transmission Date: 20251021
  Serious: Yes (Other)
  Sender: MYLAN
  Company Number: EU-DAIICHI SANKYO EUROPE GMBH-DS-2025-149052-DE

PATIENT
  Age: 55 Year
  Sex: Male

DRUGS (4)
  1. FENOFIBRATE [Interacting]
     Active Substance: FENOFIBRATE
     Indication: Type IIa hyperlipidaemia
  2. BEMPEDOIC ACID [Interacting]
     Active Substance: BEMPEDOIC ACID
     Indication: Type IIa hyperlipidaemia
  3. EZETIMIBE [Concomitant]
     Active Substance: EZETIMIBE
     Indication: Type IIa hyperlipidaemia
  4. EVOLOCUMAB [Concomitant]
     Active Substance: EVOLOCUMAB
     Indication: Type IIa hyperlipidaemia

REACTIONS (2)
  - High density lipoprotein decreased [Recovered/Resolved]
  - Drug interaction [Recovered/Resolved]
